FAERS Safety Report 9388908 (Version 2)
Quarter: 2013Q3

REPORT INFORMATION
  Report Type: Spontaneous
  Country: US (occurrence: US)
  Receive Date: 20130708
  Receipt Date: 20130710
  Transmission Date: 20140515
  Serious: Yes (Hospitalization)
  Sender: FDA-Public Use
  Company Number: US-BRISTOL-MYERS SQUIBB COMPANY-19074095

PATIENT
  Sex: Male

DRUGS (2)
  1. ABILIFY INJECTION [Suspect]
     Dosage: MAINTENA?IM DEPOT
     Route: 030
  2. ABILIFY [Suspect]
     Dosage: DOSE DECREASED TO 10MG
     Route: 048

REACTIONS (3)
  - Thinking abnormal [Unknown]
  - Screaming [Unknown]
  - Oromandibular dystonia [Recovered/Resolved]
